FAERS Safety Report 6022923-2 (Version None)
Quarter: 2008Q4

REPORT INFORMATION
  Report Type: 
  Country: None (occurrence: None)
  Receive Date: 20081230
  Receipt Date: 20081223
  Transmission Date: 20090506
  Serious: Yes (Hospitalization)
  Sender: FDA-Public Use
  Company Number: PHHO2008FR10890

PATIENT
  Sex: Male

DRUGS (6)
  1. ZOLEDRONIC ACID [Suspect]
     Indication: BONE SARCOMA
     Dosage: 4MG
     Route: 042
     Dates: start: 20080731
  2. METHOTREXATE [Suspect]
     Indication: BONE SARCOMA
     Dosage: 21G
     Route: 042
     Dates: start: 20080825
  3. IFOSFAMIDE [Suspect]
     Indication: BONE SARCOMA
     Dosage: 20.8 G, UNK
     Dates: start: 20080804, end: 20080807
  4. ETOPOSIDE [Suspect]
     Indication: BONE SARCOMA
     Dosage: 520 MG, UNK
     Dates: start: 20080623, end: 20080623
  5. VITAMIN D [Concomitant]
  6. CALCIUM [Concomitant]

REACTIONS (5)
  - ARTHRITIS INFECTIVE [None]
  - OEDEMA [None]
  - OSTEOMYELITIS [None]
  - STAPHYLOCOCCAL INFECTION [None]
  - SURGERY [None]
